FAERS Safety Report 10947888 (Version 1)
Quarter: 2015Q1

REPORT INFORMATION
  Report Type: Spontaneous
  Country: US (occurrence: US)
  Receive Date: 20150324
  Receipt Date: 20150324
  Transmission Date: 20150721
  Serious: Yes (Hospitalization)
  Sender: FDA-Public Use
  Company Number: US-BEH-2015049694

PATIENT
  Sex: Female

DRUGS (1)
  1. BERINERT [Suspect]
     Active Substance: HUMAN C1-ESTERASE INHIBITOR
     Indication: HEREDITARY ANGIOEDEMA
     Route: 042
     Dates: start: 20100707

REACTIONS (8)
  - Peripheral swelling [Unknown]
  - Dehydration [Unknown]
  - White blood cell count increased [Unknown]
  - Sepsis [Unknown]
  - Vomiting [Unknown]
  - Hereditary angioedema [Unknown]
  - Nausea [Unknown]
  - Abdominal distension [Unknown]
